FAERS Safety Report 8048638-7 (Version None)
Quarter: 2012Q1

REPORT INFORMATION
  Report Type: 
  Country: None (occurrence: None)
  Receive Date: 20120117
  Receipt Date: 20120109
  Transmission Date: 20120608
  Serious: Yes (Hospitalization)
  Sender: FDA-Public Use
  Company Number: US-AMGEN-USASP2011066478

PATIENT
  Age: 53 Year
  Sex: Female
  Weight: 100.68 kg

DRUGS (5)
  1. LODINE [Concomitant]
     Indication: OSTEOARTHRITIS
     Dosage: 500 MG, BID
     Route: 048
  2. ENBREL [Suspect]
     Indication: RHEUMATOID ARTHRITIS
     Dosage: 50 MG, QWK
     Route: 058
     Dates: start: 20000223
  3. PREVACID [Concomitant]
     Indication: GASTROOESOPHAGEAL REFLUX DISEASE
     Dosage: 30 MG, QD
     Route: 048
  4. NEUROTIN                           /00949202/ [Concomitant]
     Indication: NEURALGIA
     Dosage: 600 MG, TID
     Route: 048
     Dates: start: 20080101
  5. PREDNISONE [Concomitant]
     Indication: RHEUMATOID ARTHRITIS
     Dosage: 10 MG, QD
     Route: 048

REACTIONS (16)
  - EXOSTOSIS [None]
  - BURSITIS [None]
  - PULMONARY FIBROSIS [None]
  - GAIT DISTURBANCE [None]
  - BACK PAIN [None]
  - INTERVERTEBRAL DISC COMPRESSION [None]
  - OSTEOMALACIA [None]
  - INTERVERTEBRAL DISC PROTRUSION [None]
  - TRIGGER FINGER [None]
  - ADENOIDAL DISORDER [None]
  - SPINAL OSTEOARTHRITIS [None]
  - DYSPHAGIA [None]
  - FALL [None]
  - COUGH [None]
  - RHEUMATOID ARTHRITIS [None]
  - HYPERSENSITIVITY [None]
